FAERS Safety Report 5429901-2 (Version None)
Quarter: 2007Q3

REPORT INFORMATION
  Report Type: 
  Country: None (occurrence: None)
  Receive Date: 20070827
  Receipt Date: 20070817
  Transmission Date: 20080115
  Serious: Yes (Other)
  Sender: FDA-Public Use
  Company Number: 2007SP016702

PATIENT
  Age: 46 Year
  Sex: Male
  Weight: 62 kg

DRUGS (5)
  1. NASONEX [Suspect]
     Indication: ALVEOLITIS ALLERGIC
     Dosage: 2 DF; BID; NAS
     Route: 045
     Dates: start: 20070604, end: 20070606
  2. JARSIN [Concomitant]
  3. PULMICORT [Concomitant]
  4. NASACORT [Concomitant]
  5. NASACORT [Concomitant]

REACTIONS (1)
  - FORMICATION [None]
